FAERS Safety Report 22120642 (Version 1)
Quarter: 2023Q1

REPORT INFORMATION
  Report Type: Spontaneous
  Country: US (occurrence: None)
  Receive Date: 20230320
  Receipt Date: 20230320
  Transmission Date: 20230418
  Serious: Yes (Death)
  Sender: FDA-Public Use
  Company Number: None

PATIENT
  Age: 3 Year
  Sex: Female

DRUGS (1)
  1. SILDENAFIL [Suspect]
     Active Substance: SILDENAFIL
     Indication: Pulmonary hypertension
     Dosage: OTHER FREQUENCY : Q 6 H;?OTHER ROUTE : VIA G TUBE ;?
     Route: 050
     Dates: start: 20220630, end: 20230320

REACTIONS (1)
  - Death [None]
